FAERS Safety Report 5688967-5 (Version None)
Quarter: 2008Q1

REPORT INFORMATION
  Report Type: 
  Country: None (occurrence: None)
  Receive Date: 20080331
  Receipt Date: 20060606
  Transmission Date: 20080703
  Serious: Yes (Death)
  Sender: FDA-Public Use
  Company Number: JP-ROCHE-451227

PATIENT
  Age: 49 Year
  Sex: Male

DRUGS (9)
  1. TAMIFLU [Suspect]
     Route: 048
     Dates: start: 20060217, end: 20060217
  2. TAMIFLU [Suspect]
     Route: 048
     Dates: start: 20060218, end: 20060218
  3. TAMIFLU [Suspect]
     Route: 048
     Dates: start: 20060219, end: 20060219
  4. ASPIRIN [Concomitant]
     Route: 048
  5. PELEX [Concomitant]
     Route: 048
     Dates: start: 20060217, end: 20060219
  6. ASVERIN [Concomitant]
     Route: 048
     Dates: start: 20060217, end: 20060219
  7. ASTOMIN [Concomitant]
     Route: 048
     Dates: start: 20060217, end: 20060219
  8. CESFLAN [Concomitant]
     Route: 048
     Dates: start: 20060217, end: 20060219
  9. NEUER [Concomitant]
     Dosage: FORM: FINE GRANULE.
     Route: 048
     Dates: start: 20060217, end: 20060219

REACTIONS (1)
  - DEATH [None]
